FAERS Safety Report 6210921-5 (Version None)
Quarter: 2009Q2

REPORT INFORMATION
  Report Type: 
  Country: None (occurrence: None)
  Receive Date: 20090601
  Receipt Date: 20090522
  Transmission Date: 20091009
  Serious: Yes (Hospitalization)
  Sender: FDA-Public Use
  Company Number: IT-ABBOTT-09P-083-0572034-00

PATIENT
  Sex: Female

DRUGS (7)
  1. HUMIRA [Suspect]
     Indication: CROHN'S DISEASE
     Route: 058
     Dates: start: 20081001, end: 20090125
  2. TAVOR [Concomitant]
     Indication: INSOMNIA
     Route: 048
  3. TACHIPIRINA [Concomitant]
     Indication: ABDOMINAL PAIN
     Route: 048
     Dates: start: 20080601, end: 20090210
  4. BALZIDE [Concomitant]
     Indication: CROHN'S DISEASE
     Route: 048
  5. TRITTICO [Concomitant]
     Indication: DEPRESSION
     Route: 048
     Dates: start: 20080401, end: 20090210
  6. TRIASPORIN [Concomitant]
     Indication: DRUG USE FOR UNKNOWN INDICATION
     Route: 048
  7. ON BIOL [Concomitant]
     Indication: DRUG USE FOR UNKNOWN INDICATION
     Route: 048
     Dates: start: 20081201, end: 20090210

REACTIONS (1)
  - VENOUS THROMBOSIS [None]
